FAERS Safety Report 16004640 (Version 1)
Quarter: 2019Q1

REPORT INFORMATION
  Report Type: Spontaneous
  Country: US (occurrence: US)
  Receive Date: 20190225
  Receipt Date: 20190225
  Transmission Date: 20190418
  Serious: Yes (Disabling)
  Sender: FDA-Public Use
  Company Number: None

PATIENT
  Age: 41 Year
  Sex: Female
  Weight: 60.75 kg

DRUGS (3)
  1. ALDARA [Suspect]
     Active Substance: IMIQUIMOD
     Indication: VULVAL NEOPLASM
     Dosage: ?          QUANTITY:.25 PACKET;?
     Route: 061
     Dates: start: 20180912, end: 20181201
  2. FISH OIL [Concomitant]
     Active Substance: FISH OIL
  3. VITAMIN D [Concomitant]
     Active Substance: CHOLECALCIFEROL

REACTIONS (17)
  - Feeling cold [None]
  - Vertigo [None]
  - Pain in extremity [None]
  - Pyrexia [None]
  - Hyperhidrosis [None]
  - Abdominal pain [None]
  - Neck pain [None]
  - Flushing [None]
  - Decreased appetite [None]
  - Musculoskeletal chest pain [None]
  - Ear discomfort [None]
  - Hot flush [None]
  - Myalgia [None]
  - Nausea [None]
  - Paraesthesia [None]
  - Spinal pain [None]
  - Back pain [None]

NARRATIVE: CASE EVENT DATE: 20181130
